FAERS Safety Report 8938529 (Version 1)
Quarter: 2012Q4

REPORT INFORMATION
  Report Type: Report from Study
  Country: US (occurrence: US)
  Receive Date: 20121130
  Receipt Date: 20121130
  Transmission Date: 20130627
  Serious: Yes (Other)
  Sender: FDA-Public Use
  Company Number: US-ROCHE-1160960

PATIENT
  Age: 62 Year
  Sex: Female
  Weight: 73.5 kg

DRUGS (15)
  1. RITUXIMAB [Suspect]
     Indication: RHEUMATOID ARTHRITIS
     Route: 042
  2. METHOTREXATE [Concomitant]
     Indication: RHEUMATOID ARTHRITIS
     Route: 058
     Dates: start: 20110119
  3. ESTRADIOL [Concomitant]
     Indication: HORMONE REPLACEMENT THERAPY
     Dosage: 0.5
     Route: 065
     Dates: start: 20120508
  4. RELAFEN [Concomitant]
     Indication: RHEUMATOID ARTHRITIS
     Dosage: 375
     Route: 065
  5. ZYRTEC [Concomitant]
     Dosage: 10
     Route: 065
  6. CALTRATE [Concomitant]
     Indication: OSTEOPOROSIS
     Dosage: 630
     Route: 065
  7. BENADRYL [Concomitant]
     Dosage: 25
     Route: 065
     Dates: start: 20120601
  8. RECLAST [Concomitant]
     Indication: RHEUMATOID ARTHRITIS
     Dosage: unknown
     Route: 065
     Dates: start: 20111201
  9. PREDNISONE [Concomitant]
     Indication: RHEUMATOID ARTHRITIS
     Dosage: 10
     Route: 065
  10. FOLIC ACID [Concomitant]
     Dosage: 1
     Route: 065
  11. FORTEO [Concomitant]
     Indication: OSTEOPOROSIS
     Dosage: unknown
     Route: 065
     Dates: start: 20120409
  12. OMEPRAZOLE [Concomitant]
     Indication: GASTROOESOPHAGEAL REFLUX DISEASE
     Dosage: 40
     Route: 065
     Dates: start: 20091229
  13. PLAQUENIL [Concomitant]
     Indication: RHEUMATOID ARTHRITIS
     Dosage: 100
     Route: 065
  14. ESTRACE [Concomitant]
     Indication: HORMONE REPLACEMENT THERAPY
     Dosage: 0.5
     Route: 065
     Dates: start: 20100603
  15. AMBIEN [Concomitant]
     Dosage: 2.5
     Route: 065

REACTIONS (1)
  - Fall [Recovering/Resolving]
